FAERS Safety Report 9744083 (Version 1)
Quarter: 2013Q4

REPORT INFORMATION
  Report Type: Spontaneous
  Country: GB (occurrence: GB)
  Receive Date: 20131210
  Receipt Date: 20131210
  Transmission Date: 20140711
  Serious: Yes (Other)
  Sender: FDA-Public Use
  Company Number: PHHY2013GB141338

PATIENT
  Age: 5 Year
  Sex: Female

DRUGS (3)
  1. LEVETIRACETAM [Suspect]
  2. CLOBAZAM [Concomitant]
     Dosage: 10 UKN, UNK
  3. LAMOTRIGINE [Concomitant]
     Dosage: 100 UKN, UNK

REACTIONS (1)
  - Neurosurgery [Unknown]
